FAERS Safety Report 6814473-8 (Version None)
Quarter: 2010Q3

REPORT INFORMATION
  Report Type: 
  Country: None (occurrence: None)
  Receive Date: 20100702
  Receipt Date: 20100628
  Transmission Date: 20110219
  Serious: Yes (Death, Other)
  Sender: FDA-Public Use
  Company Number: PHHY2010MX42448

PATIENT
  Age: 81 Year
  Sex: Female

DRUGS (4)
  1. ACLASTA [Suspect]
     Indication: OSTEOPOROSIS
     Dosage: 5 MG PER YEAR
     Route: 042
     Dates: start: 20090901
  2. ASPIRIN [Concomitant]
  3. METOPROLOL TARTRATE [Concomitant]
  4. CAPTOPRIL [Concomitant]

REACTIONS (3)
  - DEPRESSION [None]
  - GAIT DISTURBANCE [None]
  - SPEECH DISORDER [None]
